FAERS Safety Report 24092257 (Version 1)
Quarter: 2024Q3

REPORT INFORMATION
  Report Type: Spontaneous
  Country: CN (occurrence: CN)
  Receive Date: 20240715
  Receipt Date: 20240715
  Transmission Date: 20241017
  Serious: Yes (Disabling)
  Sender: PFIZER
  Company Number: CN-PFIZER INC-PV202400091560

PATIENT
  Age: 28 Year
  Sex: Male
  Weight: 54 kg

DRUGS (10)
  1. LINEZOLID [Suspect]
     Active Substance: LINEZOLID
     Indication: Pulmonary tuberculosis
     Dosage: 300 ML, 2X/DAY
     Route: 041
     Dates: start: 20200805, end: 20200808
  2. ISONIAZID [Suspect]
     Active Substance: ISONIAZID
     Indication: Pulmonary tuberculosis
     Dosage: 6 ML, 1X/DAY
     Route: 041
     Dates: start: 20200805, end: 20200808
  3. RIFAMPIN [Suspect]
     Active Substance: RIFAMPIN
     Indication: Pulmonary tuberculosis
     Dosage: 0.45 G, 1X/DAY
     Route: 041
     Dates: start: 20200805, end: 20200808
  4. BIAPENEM [Suspect]
     Active Substance: BIAPENEM
     Indication: Pneumonia
     Dosage: 0.3 G, 3X/DAY
     Route: 041
     Dates: start: 20200803, end: 20200804
  5. VANCOMYCIN HYDROCHLORIDE [Suspect]
     Active Substance: VANCOMYCIN HYDROCHLORIDE
     Indication: Pneumonia
     Dosage: 1000 MG, 2X/DAY
     Route: 041
     Dates: start: 20200804, end: 20200805
  6. NEMONOXACIN [Suspect]
     Active Substance: NEMONOXACIN
     Indication: Pneumonia
     Dosage: 2 DF, 1X/DAY
     Route: 048
     Dates: start: 20200804, end: 20200805
  7. SODIUM CHLORIDE [Concomitant]
     Active Substance: SODIUM CHLORIDE
     Indication: Vehicle solution use
     Dosage: 100 ML, 3X/DAY
     Route: 041
     Dates: start: 20200803, end: 20200804
  8. SODIUM CHLORIDE [Concomitant]
     Active Substance: SODIUM CHLORIDE
     Dosage: 100 ML, 2X/DAY
     Route: 041
     Dates: start: 20200804, end: 20200805
  9. SODIUM CHLORIDE [Concomitant]
     Active Substance: SODIUM CHLORIDE
     Indication: Vehicle solution use
     Dosage: 250 ML, 1X/DAY
     Route: 041
     Dates: start: 20200805, end: 20200808
  10. DEXTROSE [Concomitant]
     Active Substance: DEXTROSE\DEXTROSE MONOHYDRATE
     Indication: Vehicle solution use
     Dosage: 250 ML, 1X/DAY
     Route: 041
     Dates: start: 20200805, end: 20200808

REACTIONS (1)
  - Renal impairment [Recovering/Resolving]

NARRATIVE: CASE EVENT DATE: 20200808
